FAERS Safety Report 19510018 (Version 1)
Quarter: 2021Q3

REPORT INFORMATION
  Report Type: Spontaneous
  Country: US (occurrence: US)
  Receive Date: 20210708
  Receipt Date: 20210708
  Transmission Date: 20211014
  Serious: No
  Sender: FDA-Public Use
  Company Number: US-INTRA-CELLULAR THERAPIES, INC.-2021ICT00232

PATIENT
  Age: 38 Year
  Sex: Female

DRUGS (1)
  1. CAPLYTA [Suspect]
     Active Substance: LUMATEPERONE
     Indication: SCHIZOPHRENIA
     Dosage: UNK
     Dates: start: 202105

REACTIONS (6)
  - Dizziness [Unknown]
  - Hypoaesthesia [Unknown]
  - Asthenia [Unknown]
  - Sedation [Unknown]
  - Body temperature decreased [Unknown]
  - Fall [Unknown]

NARRATIVE: CASE EVENT DATE: 202105
